FAERS Safety Report 5063548-5 (Version None)
Quarter: 2006Q3

REPORT INFORMATION
  Report Type: 
  Country: None (occurrence: None)
  Receive Date: 20060727
  Receipt Date: 20060721
  Transmission Date: 20061208
  Serious: Yes (Other)
  Sender: FDA-Public Use
  Company Number: PHNU2006DE02590

PATIENT
  Sex: Male

DRUGS (1)
  1. PROVAS COMP [Suspect]
     Route: 048

REACTIONS (3)
  - BACK PAIN [None]
  - CONCOMITANT DISEASE AGGRAVATED [None]
  - SPINAL DEFORMITY [None]
